FAERS Safety Report 17945229 (Version 2)
Quarter: 2020Q3

REPORT INFORMATION
  Report Type: Spontaneous
  Country: US (occurrence: US)
  Receive Date: 20200625
  Receipt Date: 20200708
  Transmission Date: 20201103
  Serious: No
  Sender: FDA-Public Use
  Company Number: US-IPSEN BIOPHARMACEUTICALS, INC.-2020-10957

PATIENT
  Age: 49 Year
  Sex: Male
  Weight: 117.1 kg

DRUGS (7)
  1. SOMATULINE DEPOT [Suspect]
     Active Substance: LANREOTIDE ACETATE
     Indication: ACROMEGALY
     Route: 058
     Dates: start: 2019
  2. CORTEF [Concomitant]
     Active Substance: HYDROCORTISONE
     Dosage: ONE AND HALF TABLE IN THE MORNING AND HALF TABLET  IN THE AFTERNOON. DOUBLE THE DOSE FOR 2?3 DAYS
  3. FIORINAL?CODEINE [Concomitant]
     Dosage: 1 CAPSULE BY MOUTH EVERY 4 HOURS AS NEEDED
     Route: 048
  4. SOLU?CORTEF [Concomitant]
     Active Substance: HYDROCORTISONE SODIUM SUCCINATE
     Dosage: USE 100 MG IM IF CANNOT KEEP THE MEDICATION DOWN
     Route: 030
  5. TESTOSTERONE CIPIONATE [Concomitant]
     Active Substance: TESTOSTERONE
  6. DELATESTRYL [Concomitant]
     Active Substance: TESTOSTERONE ENANTHATE
     Dosage: DISCARD AFTER 28 DAYS
     Route: 030
  7. SYNTHROID [Concomitant]
     Active Substance: LEVOTHYROXINE SODIUM
     Dosage: 1 TABLET BY MOUTH ONCE DAILY
     Route: 048

REACTIONS (1)
  - Swelling [Recovered/Resolved]

NARRATIVE: CASE EVENT DATE: 202002
